FAERS Safety Report 10395618 (Version 3)
Quarter: 2014Q4

REPORT INFORMATION
  Report Type: Spontaneous
  Country: US (occurrence: US)
  Receive Date: 20140820
  Receipt Date: 20141009
  Transmission Date: 20150528
  Serious: Yes (Other)
  Sender: FDA-Public Use
  Company Number: US-ASTELLAS-2014US010481

PATIENT
  Age: 68 Year
  Sex: Male
  Weight: 111 kg

DRUGS (2)
  1. LUPRON [Concomitant]
     Active Substance: LEUPROLIDE ACETATE
     Indication: PROSTATE CANCER
     Dosage: UNK UNK, OTHER-EVERY 3 MONTHS
     Route: 065
     Dates: start: 20140715
  2. XTANDI [Suspect]
     Active Substance: ENZALUTAMIDE
     Indication: PROSTATE CANCER
     Route: 048
     Dates: start: 20140613, end: 20140812

REACTIONS (3)
  - Headache [Unknown]
  - Swelling [Unknown]
  - Pituitary tumour benign [Unknown]

NARRATIVE: CASE EVENT DATE: 201407
